FAERS Safety Report 8787122 (Version 1)
Quarter: 2012Q4

REPORT INFORMATION
  Report Type: 
  Country: US (occurrence: US)
  Receive Date: 20120914
  Receipt Date: 20120914
  Transmission Date: 20130627
  Serious: No
  Sender: FDA-Public Use
  Company Number: US-PFIZER INC-2012226719

PATIENT
  Age: 53 Year
  Sex: Female
  Weight: 109 kg

DRUGS (5)
  1. CHANTIX [Suspect]
     Indication: SMOKING CESSATION THERAPY
     Dosage: UNK
     Route: 048
     Dates: start: 201208
  2. CARVEDILOL [Concomitant]
     Indication: CARDIAC DISORDER
     Dosage: 12.5mg daily
     Route: 048
  3. WARFARIN [Concomitant]
     Indication: ANTICOAGULANT THERAPY
     Dosage: 5mg daily
  4. INSULIN [Concomitant]
     Indication: DIABETES MELLITUS
     Dosage: 85 IU daily
  5. DIGOXIN [Concomitant]
     Indication: CARDIAC DISORDER
     Dosage: 125 ug daily

REACTIONS (1)
  - Oral pain [Not Recovered/Not Resolved]
